FAERS Safety Report 23280671 (Version 3)
Quarter: 2024Q2

REPORT INFORMATION
  Report Type: Spontaneous
  Country: US (occurrence: US)
  Receive Date: 20231211
  Receipt Date: 20240402
  Transmission Date: 20240716
  Serious: No
  Sender: FDA-Public Use
  Company Number: US-BoehringerIngelheim-2023-BI-277025

PATIENT
  Age: 71 Year
  Sex: Female

DRUGS (1)
  1. SPIRIVA RESPIMAT [Suspect]
     Active Substance: TIOTROPIUM BROMIDE
     Indication: Product used for unknown indication
     Dosage: 2 PUFFS DAILY
     Dates: start: 202309, end: 202312

REACTIONS (9)
  - Respiratory tract infection [Not Recovered/Not Resolved]
  - Blood pressure increased [Not Recovered/Not Resolved]
  - Dizziness [Not Recovered/Not Resolved]
  - Pain [Not Recovered/Not Resolved]
  - Decreased appetite [Not Recovered/Not Resolved]
  - Weight decreased [Not Recovered/Not Resolved]
  - Chest pain [Not Recovered/Not Resolved]
  - Productive cough [Not Recovered/Not Resolved]
  - Fatigue [Not Recovered/Not Resolved]

NARRATIVE: CASE EVENT DATE: 20231001
